FAERS Safety Report 17646048 (Version 1)
Quarter: 2020Q2

REPORT INFORMATION
  Report Type: Spontaneous
  Country: US (occurrence: US)
  Receive Date: 20200408
  Receipt Date: 20200408
  Transmission Date: 20200713
  Serious: No
  Sender: FDA-Public Use
  Company Number: US-SA-2020SA084629

PATIENT
  Age: 72 Year
  Sex: Female

DRUGS (3)
  1. BENADRYL [Concomitant]
     Active Substance: DIPHENHYDRAMINE HYDROCHLORIDE
     Dosage: 2 DF
  2. DUPIXENT [Suspect]
     Active Substance: DUPILUMAB
     Dosage: UNK
     Dates: start: 20200131
  3. DULERA [Concomitant]
     Active Substance: FORMOTEROL FUMARATE DIHYDRATE\MOMETASONE FUROATE

REACTIONS (10)
  - Swelling of eyelid [Unknown]
  - Feeling hot [Unknown]
  - Rash macular [Unknown]
  - Oropharyngeal discomfort [Unknown]
  - Erythema of eyelid [Unknown]
  - Dry eye [Unknown]
  - Oral candidiasis [Unknown]
  - Swelling face [Unknown]
  - Lung disorder [Unknown]
  - Erythema [Unknown]
